FAERS Safety Report 5379116-1 (Version None)
Quarter: 2007Q3

REPORT INFORMATION
  Report Type: 
  Country: None (occurrence: None)
  Receive Date: 20070705
  Receipt Date: 20070629
  Transmission Date: 20080115
  Serious: Yes (Hospitalization)
  Sender: FDA-Public Use
  Company Number: US-BRISTOL-MYERS SQUIBB COMPANY-13784533

PATIENT
  Age: 59 Year
  Sex: Female
  Weight: 61 kg

DRUGS (5)
  1. ERBITUX [Suspect]
     Indication: COLON CANCER
     Route: 042
     Dates: start: 20060703, end: 20070425
  2. FOLINIC ACID [Concomitant]
     Dates: start: 20060703, end: 20070425
  3. FLUOROURACIL [Concomitant]
     Dates: start: 20060703, end: 20070425
  4. OXALIPLATIN [Concomitant]
     Dates: start: 20060703, end: 20070425
  5. AVASTIN [Concomitant]
     Dates: start: 20070308, end: 20070425

REACTIONS (1)
  - JAUNDICE [None]
